FAERS Safety Report 25257076 (Version 4)
Quarter: 2025Q3

REPORT INFORMATION
  Report Type: Report from Study
  Country: US (occurrence: US)
  Receive Date: 20250430
  Receipt Date: 20250717
  Transmission Date: 20251020
  Serious: Yes (Hospitalization)
  Sender: TAKEDA
  Company Number: US-TAKEDA-2025TUS040610

PATIENT
  Sex: Female
  Weight: 83.719 kg

DRUGS (1)
  1. FRUQUINTINIB [Suspect]
     Active Substance: FRUQUINTINIB
     Indication: Rectal cancer

REACTIONS (15)
  - Mouth haemorrhage [Unknown]
  - Blood glucose decreased [Unknown]
  - Headache [Unknown]
  - Blood pressure abnormal [Recovering/Resolving]
  - Platelet count decreased [Unknown]
  - Fatigue [Unknown]
  - Blood pressure increased [Unknown]
  - Thirst [Unknown]
  - Feeling abnormal [Unknown]
  - Peripheral swelling [Unknown]
  - Hypersomnia [Unknown]
  - Hand-foot-and-mouth disease [Unknown]
  - Dry mouth [Unknown]
  - General physical health deterioration [Unknown]
  - Thyroid hormones increased [Unknown]
